FAERS Safety Report 12806293 (Version 1)
Quarter: 2016Q4

REPORT INFORMATION
  Report Type: Spontaneous
  Country: US (occurrence: US)
  Receive Date: 20161003
  Receipt Date: 20161003
  Transmission Date: 20170207
  Serious: Yes (Hospitalization)
  Sender: FDA-Public Use
  Company Number: None

PATIENT
  Age: 66 Year
  Sex: Male
  Weight: 107.8 kg

DRUGS (1)
  1. DARATUMUMAB [Suspect]
     Active Substance: DARATUMUMAB
     Indication: PLASMA CELL MYELOMA
     Dosage: ?          OTHER FREQUENCY:Q 2 WEEK;?
     Route: 042
     Dates: start: 20160627, end: 20160927

REACTIONS (5)
  - Body temperature increased [None]
  - Somnolence [None]
  - Posterior reversible encephalopathy syndrome [None]
  - Sepsis [None]
  - Malaise [None]

NARRATIVE: CASE EVENT DATE: 20160929
